FAERS Safety Report 7204076-8 (Version None)
Quarter: 2010Q4

REPORT INFORMATION
  Report Type: 
  Country: None (occurrence: None)
  Receive Date: 20101230
  Receipt Date: 20101221
  Transmission Date: 20110411
  Serious: Yes (Life-Threatening, Hospitalization)
  Sender: FDA-Public Use
  Company Number: MY-ELI_LILLY_AND_COMPANY-MY201007000430

PATIENT
  Age: 42 Year
  Sex: Male
  Weight: 65 kg

DRUGS (8)
  1. OLANZAPINE [Suspect]
     Indication: BIPOLAR DISORDER
     Dosage: 10 MG, 2/D
     Route: 048
     Dates: start: 20060622
  2. LORAZEPAM [Concomitant]
     Indication: MANIA
     Dosage: 1 MG, 3/D
     Dates: start: 20100622, end: 20100628
  3. CHLORPROMAZINE [Concomitant]
     Indication: MANIA
     Dosage: 200 MG, 3/D
     Dates: start: 20100625, end: 20100630
  4. VALPROATE SODIUM [Concomitant]
     Indication: MANIA
     Dosage: 400 MG, 2/D
     Dates: start: 20100625, end: 20100628
  5. BENZHEXOL [Concomitant]
     Indication: EXTRAPYRAMIDAL DISORDER
     Dosage: 2 MG, 2/D
     Dates: start: 20100625
  6. ZIPRASIDONE HCL [Concomitant]
     Indication: AGGRESSION
     Dosage: 20 MG, OTHER (STAT)
     Dates: start: 20100625, end: 20100625
  7. ZIPRASIDONE HCL [Concomitant]
     Dosage: 10 MG, OTHER (STAT)
     Dates: start: 20100627, end: 20100627
  8. ZIPRASIDONE HCL [Concomitant]
     Dosage: 10 MG, OTHER (STAT)
     Dates: start: 20100628, end: 20100628

REACTIONS (1)
  - RESPIRATORY DEPRESSION [None]
